FAERS Safety Report 11890344 (Version 1)
Quarter: 2016Q1

REPORT INFORMATION
  Report Type: Spontaneous
  Country: US (occurrence: US)
  Receive Date: 20160105
  Receipt Date: 20160105
  Transmission Date: 20160526
  Serious: No
  Sender: FDA-Public Use
  Company Number: US-GLAXOSMITHKLINE-US2015183814

PATIENT
  Sex: Male

DRUGS (4)
  1. VERAMYST [Suspect]
     Active Substance: FLUTICASONE FUROATE
     Indication: NASAL INFLAMMATION
     Dosage: 1 PUFF(S), BID
     Route: 045
     Dates: start: 2010
  2. FLONASE [Suspect]
     Active Substance: FLUTICASONE PROPIONATE
     Indication: NASAL INFLAMMATION
     Dosage: 1 PUFF(S), UNK
     Route: 045
  3. NASONEX [Suspect]
     Active Substance: MOMETASONE FUROATE
     Indication: NASAL INFLAMMATION
     Dosage: UNK
  4. ASTELIN [Suspect]
     Active Substance: AZELASTINE HYDROCHLORIDE
     Indication: NASAL INFLAMMATION
     Dosage: UNK

REACTIONS (2)
  - Device use error [Not Recovered/Not Resolved]
  - Drug ineffective [Recovered/Resolved]

NARRATIVE: CASE EVENT DATE: 2010
